FAERS Safety Report 7815544-X (Version None)
Quarter: 2011Q4

REPORT INFORMATION
  Report Type: 
  Country: None (occurrence: None)
  Receive Date: 20111012
  Receipt Date: 20110930
  Transmission Date: 20120403
  Serious: Yes (Other)
  Sender: FDA-Public Use
  Company Number: 2011MA014405

PATIENT
  Age: 62 Year
  Sex: Male

DRUGS (10)
  1. ACETAMINOPHEN AND CODEINE PHOSPHATE [Suspect]
     Indication: MUSCULOSKELETAL PAIN
     Dosage: BID
     Dates: start: 20110614
  2. OMEPRAZOLE [Concomitant]
  3. IRBESARTAN [Concomitant]
  4. NASONEX [Concomitant]
  5. SIMVASTATIN [Concomitant]
  6. INSULIN [Concomitant]
  7. ASPIRIN [Concomitant]
  8. BISOPROLOL [Concomitant]
  9. NOVORAPID [Concomitant]
  10. AMLODIPINE [Concomitant]

REACTIONS (2)
  - CARDIOVASCULAR DISORDER [None]
  - CONVULSION [None]
